FAERS Safety Report 4622980-1 (Version None)
Quarter: 2005Q1

REPORT INFORMATION
  Report Type: 
  Country: None (occurrence: None)
  Receive Date: 20050329
  Receipt Date: 20050315
  Transmission Date: 20050727
  Serious: No
  Sender: FDA-Public Use
  Company Number: 10609

PATIENT
  Age: 67 Year
  Sex: Female

DRUGS (6)
  1. VINCRISTINE [Suspect]
     Indication: B-CELL LYMPHOMA
  2. METHOTREXATE [Suspect]
     Indication: NEUROLOGICAL SYMPTOM
     Route: 037
  3. DOXORUBICIN HCL [Suspect]
     Indication: B-CELL LYMPHOMA
  4. CYCLOPHOSPHAMIDE [Suspect]
     Indication: B-CELL LYMPHOMA
  5. CYTARABINE [Suspect]
     Indication: NEUROLOGICAL SYMPTOM
     Route: 037
  6. PREDNISOLONE [Suspect]
     Indication: B-CELL LYMPHOMA

REACTIONS (6)
  - AGNOSIA [None]
  - DISORIENTATION [None]
  - DRUG INEFFECTIVE [None]
  - MEMORY IMPAIRMENT [None]
  - NUCLEAR MAGNETIC RESONANCE IMAGING BRAIN ABNORMAL [None]
  - WEIGHT DECREASED [None]
